FAERS Safety Report 14785015 (Version 7)
Quarter: 2018Q2

REPORT INFORMATION
  Report Type: Report from Study
  Country: US (occurrence: US)
  Receive Date: 20180420
  Receipt Date: 20180620
  Transmission Date: 20180711
  Serious: Yes (Other)
  Sender: FDA-Public Use
  Company Number: US-GILEAD-2018-0333457

PATIENT
  Age: 74 Year
  Sex: Female

DRUGS (4)
  1. AMBRISENTAN [Suspect]
     Active Substance: AMBRISENTAN
     Indication: PRODUCT USED FOR UNKNOWN INDICATION
     Dosage: 5 MG, QD
     Route: 065
     Dates: start: 20180403
  2. LASIX [Concomitant]
     Active Substance: FUROSEMIDE
  3. FUROSEMIDE. [Concomitant]
     Active Substance: FUROSEMIDE
  4. ADEMPAS [Concomitant]
     Active Substance: RIOCIGUAT

REACTIONS (14)
  - Productive cough [Not Recovered/Not Resolved]
  - Musculoskeletal chest pain [Not Recovered/Not Resolved]
  - Dehydration [Unknown]
  - Blood pressure systolic increased [Not Recovered/Not Resolved]
  - Fluid retention [Not Recovered/Not Resolved]
  - Blood potassium abnormal [Unknown]
  - Neck pain [Not Recovered/Not Resolved]
  - Oedema [Not Recovered/Not Resolved]
  - Hypotension [Not Recovered/Not Resolved]
  - Intra-abdominal fluid collection [Not Recovered/Not Resolved]
  - Constipation [Unknown]
  - Dyspnoea [Unknown]
  - Chest discomfort [Not Recovered/Not Resolved]
  - Ill-defined disorder [Not Recovered/Not Resolved]

NARRATIVE: CASE EVENT DATE: 20180405
